FAERS Safety Report 7535789-6 (Version None)
Quarter: 2011Q2

REPORT INFORMATION
  Report Type: 
  Country: None (occurrence: None)
  Receive Date: 20110602
  Receipt Date: 20110523
  Transmission Date: 20111010
  Serious: Yes (Other)
  Sender: FDA-Public Use
  Company Number: TPA2011A00148

PATIENT
  Age: 48 Year
  Sex: Male
  Weight: 81.6475 kg

DRUGS (8)
  1. METFORMIN HCL [Concomitant]
  2. OMEPRAZOLE [Concomitant]
  3. OMEGA-3-ACID ETHYL ESTERS (LOVAZA) [Concomitant]
  4. APIDRA [Concomitant]
  5. MAVIK [Concomitant]
  6. ULORIC [Suspect]
     Indication: GOUT
     Dosage: 40 MG, 1 IN 1 D, PER ORAL
     Route: 048
     Dates: start: 20101202, end: 20110105
  7. ULORIC [Suspect]
     Indication: BLOOD URIC ACID INCREASED
     Dosage: 40 MG, 1 IN 1 D, PER ORAL
     Route: 048
     Dates: start: 20101202, end: 20110105
  8. LANTUS [Concomitant]

REACTIONS (1)
  - HEPATITIS [None]
